FAERS Safety Report 20987797 (Version 1)
Quarter: 2022Q2

REPORT INFORMATION
  Report Type: Spontaneous
  Country: US (occurrence: None)
  Receive Date: 20220620
  Receipt Date: 20220620
  Transmission Date: 20220721
  Serious: Yes (Death)
  Sender: FDA-Public Use
  Company Number: None

PATIENT
  Age: 75 Year
  Sex: Male

DRUGS (1)
  1. TEMOZOLOMIDE [Suspect]
     Active Substance: TEMOZOLOMIDE
     Indication: Brain neoplasm malignant
     Dosage: 180MG  ONCE DAILY BY MOUTH?
     Route: 048
     Dates: start: 20220511, end: 20220522

REACTIONS (2)
  - Glioblastoma [None]
  - Malignant neoplasm progression [None]

NARRATIVE: CASE EVENT DATE: 20220616
